FAERS Safety Report 12927421 (Version 1)
Quarter: 2016Q4

REPORT INFORMATION
  Report Type: Spontaneous
  Country: US (occurrence: US)
  Receive Date: 20161109
  Receipt Date: 20161109
  Transmission Date: 20170207
  Serious: Yes (Death)
  Sender: FDA-Public Use
  Company Number: None

PATIENT
  Age: 69 Year
  Sex: Male

DRUGS (8)
  1. COLACE [Concomitant]
     Active Substance: DOCUSATE SODIUM
  2. CALCIUM [Concomitant]
     Active Substance: CALCIUM
  3. ASA [Concomitant]
     Active Substance: ASPIRIN
  4. ASTORVASTIN [Concomitant]
  5. PANTOPRAZ [Concomitant]
  6. POTASS [Concomitant]
  7. SPIRONOLACT [Concomitant]
  8. ZYTIGA [Suspect]
     Active Substance: ABIRATERONE ACETATE
     Indication: PROSTATE CANCER
     Route: 048
     Dates: start: 20161003, end: 20161025

REACTIONS (1)
  - Death [None]

NARRATIVE: CASE EVENT DATE: 20161025
